FAERS Safety Report 4505638-9 (Version None)
Quarter: 2004Q4

REPORT INFORMATION
  Report Type: 
  Country: None (occurrence: None)
  Receive Date: 20041119
  Receipt Date: 20041026
  Transmission Date: 20050328
  Serious: Yes (Hospitalization)
  Sender: FDA-Public Use
  Company Number: US-MERCK-0410USA04181

PATIENT
  Age: 40 Year
  Sex: Female

DRUGS (4)
  1. SINGULAIR [Suspect]
     Indication: ASTHMA
     Route: 048
  2. SINGULAIR [Suspect]
     Indication: HYPERSENSITIVITY
     Route: 048
  3. ALBUTEROL [Concomitant]
     Route: 055
  4. TYLENOL [Concomitant]
     Route: 065

REACTIONS (4)
  - ALLERGIC GRANULOMATOUS ANGIITIS [None]
  - HEPATITIS CHOLESTATIC [None]
  - PLEURAL EFFUSION [None]
  - PNEUMONIA [None]
